FAERS Safety Report 16368473 (Version 3)
Quarter: 2019Q2

REPORT INFORMATION
  Report Type: Spontaneous
  Country: US (occurrence: US)
  Receive Date: 20190529
  Receipt Date: 20190607
  Transmission Date: 20190711
  Serious: Yes (Hospitalization)
  Sender: FDA-Public Use
  Company Number: US-GLAXOSMITHKLINE-US2019AMR095085

PATIENT
  Age: 82 Year
  Sex: Female

DRUGS (1)
  1. RYTHMOL SR [Suspect]
     Active Substance: PROPAFENONE HYDROCHLORIDE
     Indication: PRODUCT USED FOR UNKNOWN INDICATION
     Dosage: 425 MG, UNK
     Route: 065
     Dates: start: 2014

REACTIONS (4)
  - Blood test abnormal [Recovering/Resolving]
  - Dizziness [Recovering/Resolving]
  - Heart rate increased [Unknown]
  - Hypertension [Recovering/Resolving]

NARRATIVE: CASE EVENT DATE: 20190519
